FAERS Safety Report 14614028 (Version 1)
Quarter: 2018Q1

REPORT INFORMATION
  Report Type: Spontaneous
  Country: CH (occurrence: CH)
  Receive Date: 20180308
  Receipt Date: 20180308
  Transmission Date: 20180509
  Serious: Yes (Death, Hospitalization)
  Sender: FDA-Public Use
  Company Number: CH-BAYER-2018-039503

PATIENT
  Age: 87 Year
  Sex: Female

DRUGS (9)
  1. AMLODIPIN [Suspect]
     Active Substance: AMLODIPINE BESYLATE
     Dosage: 5 MG, UNK
     Route: 048
     Dates: end: 20171207
  2. ASPIRIN CARDIO 100 MG [Suspect]
     Active Substance: ASPIRIN
     Dosage: 400 MG, (ONCE 4 X 100 MG)
     Route: 048
     Dates: start: 20171204, end: 20171204
  3. DIGOXIN-SANDOZ [Suspect]
     Active Substance: DIGOXIN
     Indication: ATRIAL FIBRILLATION
     Dosage: .125 MG, QD
     Route: 048
     Dates: end: 20171207
  4. COVERSUM COMBI [Suspect]
     Active Substance: INDAPAMIDE
     Dosage: 4 DF, ONCE (4 X 5 MG/1.25 MG - 1 DF = 5 MG PERINDOPRIL, 1.25 MG INDAPAMID)
     Dates: start: 20171204, end: 20171204
  5. ASPIRIN CARDIO 100 MG [Suspect]
     Active Substance: ASPIRIN
     Dosage: 100 MG, UNK
     Route: 048
  6. BILOL [Suspect]
     Active Substance: BISOPROLOL
     Dosage: 2.5 MG, UNK
     Route: 048
     Dates: end: 20171207
  7. COVERSUM COMBI [Suspect]
     Active Substance: INDAPAMIDE
     Dosage: 1 DF, UNK
     Route: 048
     Dates: end: 20171207
  8. BILOL [Suspect]
     Active Substance: BISOPROLOL
     Dosage: 10 MG, (ONCE 4 X 2.5 MG)
     Dates: start: 20171204, end: 20171204
  9. AMLODIPIN [Suspect]
     Active Substance: AMLODIPINE BESYLATE
     Dosage: 20 MG, (ONCE 4 X 5 MG)
     Dates: start: 20171204, end: 20171204

REACTIONS (14)
  - Hypotension [Unknown]
  - Nausea [Unknown]
  - Torsade de pointes [Fatal]
  - Ventricular fibrillation [Fatal]
  - Chromaturia [Unknown]
  - Oliguria [Unknown]
  - Asthenia [Unknown]
  - Hypokalaemia [Unknown]
  - Visual impairment [Unknown]
  - Weight decreased [Unknown]
  - Somnolence [Unknown]
  - Cardioactive drug level increased [Unknown]
  - Pyrexia [Unknown]
  - Bradycardia [Unknown]

NARRATIVE: CASE EVENT DATE: 201711
